FAERS Safety Report 5376601-3 (Version None)
Quarter: 2007Q2

REPORT INFORMATION
  Report Type: 
  Country: None (occurrence: None)
  Receive Date: 20070628
  Receipt Date: 20070621
  Transmission Date: 20071010
  Serious: Yes (Death)
  Sender: FDA-Public Use
  Company Number: 2007JP002539

PATIENT
  Age: 10 Day
  Sex: Female
  Weight: 0.5 kg

DRUGS (8)
  1. FUNGUARD(MICAFUNGIN) INJECTION [Suspect]
     Indication: ASPERGILLOSIS
     Dosage: SEE IMAGE
     Route: 041
     Dates: end: 20070331
  2. FUNGUARD(MICAFUNGIN) INJECTION [Suspect]
     Indication: ASPERGILLOSIS
     Dosage: SEE IMAGE
     Route: 041
     Dates: start: 20070120
  3. SOLU-CORTEF [Suspect]
     Indication: SEPSIS
     Dosage: 0.833 MG, TID
     Dates: start: 20070110, end: 20070331
  4. FLUCONAZOLE [Concomitant]
  5. MEROPEN (MEROPENEM) [Concomitant]
  6. VANCOMYCIN HYDROCHLORIDE [Concomitant]
  7. LASIX [Concomitant]
  8. VENOGLOBULIN [Concomitant]

REACTIONS (4)
  - ASPERGILLOSIS [None]
  - DRUG INEFFECTIVE [None]
  - FUNGAEMIA [None]
  - NEONATAL DISORDER [None]
